FAERS Safety Report 20579201 (Version 2)
Quarter: 2023Q4

REPORT INFORMATION
  Report Type: Spontaneous
  Country: US (occurrence: US)
  Receive Date: 20220310
  Receipt Date: 20231030
  Transmission Date: 20240110
  Serious: Yes (Other)
  Sender: FDA-Public Use
  Company Number: US-UCBSA-2022011891

PATIENT
  Age: 27 Year
  Sex: Male

DRUGS (42)
  1. LACOSAMIDE [Suspect]
     Active Substance: LACOSAMIDE
     Indication: Seizure
     Dosage: 400 MILLIGRAM PER DAY
  2. LACOSAMIDE [Suspect]
     Active Substance: LACOSAMIDE
     Indication: Status epilepticus
     Dosage: 300 MILLIGRAM PER DAY
  3. LACOSAMIDE [Suspect]
     Active Substance: LACOSAMIDE
     Indication: Off label use
     Dosage: 200 MILLIGRAM PER DAY
  4. LACOSAMIDE [Suspect]
     Active Substance: LACOSAMIDE
     Dosage: 400 MILLIGRAM PER DA
  5. LEVETIRACETAM [Suspect]
     Active Substance: LEVETIRACETAM
     Indication: Seizure
     Dosage: 6000 MILLIGRAMS PER DAY
  6. LEVETIRACETAM [Suspect]
     Active Substance: LEVETIRACETAM
     Indication: Status epilepticus
     Dosage: 8000 MILLIGRAMS PER DAY
  7. LEVETIRACETAM [Suspect]
     Active Substance: LEVETIRACETAM
     Indication: Off label use
     Dosage: 4000 MILLIGRAMS PER DAY
  8. LEVETIRACETAM [Suspect]
     Active Substance: LEVETIRACETAM
     Dosage: 8000 MILLIGRAMS PER DAY
  9. LEVETIRACETAM [Suspect]
     Active Substance: LEVETIRACETAM
     Dosage: 4000 MILLIGRAMS PER DAY
  10. MIDAZOLAM [Suspect]
     Active Substance: MIDAZOLAM
     Indication: Status epilepticus
     Dosage: 0.6 MG/KG/HR
  11. MIDAZOLAM [Suspect]
     Active Substance: MIDAZOLAM
     Indication: Seizure
     Dosage: 1.8 MG/KG/HR
  12. MIDAZOLAM [Suspect]
     Active Substance: MIDAZOLAM
     Indication: Off label use
     Dosage: 0.6 MG/KG/HR
  13. PHENYTOIN [Suspect]
     Active Substance: PHENYTOIN
     Indication: Seizure
     Dosage: 450 MILLIGRAMS PER DAY
  14. PHENYTOIN [Suspect]
     Active Substance: PHENYTOIN
     Indication: Status epilepticus
     Dosage: 900 MILLIGRAMS PER DAY
  15. PHENYTOIN [Suspect]
     Active Substance: PHENYTOIN
     Dosage: 600 MILLIGRAMS PER DAY
  16. CLOBAZAM [Suspect]
     Active Substance: CLOBAZAM
     Indication: Seizure
     Dosage: 40 MILLIGRAM PER DAY
  17. CLOBAZAM [Suspect]
     Active Substance: CLOBAZAM
     Indication: Status epilepticus
     Dosage: 20 MILLIGRAM PER DAY
  18. CLOBAZAM [Suspect]
     Active Substance: CLOBAZAM
     Dosage: 10 MILLIGRAM PER DAY
  19. PHENOBARBITAL [Suspect]
     Active Substance: PHENOBARBITAL
     Indication: Seizure
     Dosage: 300 MILLIGRAM PER DAY
  20. PHENOBARBITAL [Suspect]
     Active Substance: PHENOBARBITAL
     Indication: Status epilepticus
     Dosage: 600 MILLIGRAM PER DAY
  21. PHENOBARBITAL [Suspect]
     Active Substance: PHENOBARBITAL
     Dosage: 300 MILLIGRAM PER DAY
  22. PHENOBARBITAL [Suspect]
     Active Substance: PHENOBARBITAL
     Dosage: 1 MG/KG/HR
  23. PERAMPANEL [Suspect]
     Active Substance: PERAMPANEL
     Indication: Seizure
     Dosage: 6 MILLIGRAMS PER DAY
  24. PERAMPANEL [Suspect]
     Active Substance: PERAMPANEL
     Indication: Status epilepticus
  25. ZONISAMIDE [Suspect]
     Active Substance: ZONISAMIDE
     Indication: Seizure
     Dosage: 600 MILLIGRAMS PER DAY
  26. ZONISAMIDE [Suspect]
     Active Substance: ZONISAMIDE
     Indication: Status epilepticus
     Dosage: 400 MILLIGRAM PER DAY
  27. ZONISAMIDE [Suspect]
     Active Substance: ZONISAMIDE
     Dosage: 600 MILLIGRAMS PER DAY
  28. ZONISAMIDE [Suspect]
     Active Substance: ZONISAMIDE
     Dosage: 400 MILLIGRAM PER DAY
  29. PREGABALIN [Suspect]
     Active Substance: PREGABALIN
     Indication: Seizure
     Dosage: 3000 MILLIGRAM PER DAY
  30. PREGABALIN [Suspect]
     Active Substance: PREGABALIN
     Indication: Status epilepticus
  31. METHYLPREDNISOLONE [Suspect]
     Active Substance: METHYLPREDNISOLONE
     Indication: Seizure
     Dosage: 1 GRAM PER DAY
     Route: 042
  32. METHYLPREDNISOLONE [Suspect]
     Active Substance: METHYLPREDNISOLONE
     Indication: Status epilepticus
  33. PROPOFOL [Suspect]
     Active Substance: PROPOFOL
     Indication: Status epilepticus
     Dosage: 80 MICROGRAM/KG/MIN
  34. KETAMINE [Suspect]
     Active Substance: KETAMINE
     Indication: Status epilepticus
     Dosage: 2 MG/KG/HR
  35. ISOFLURANE [Suspect]
     Active Substance: ISOFLURANE
     Indication: Status epilepticus
     Dosage: 17 PERCENT MAC
  36. HUMAN IMMUNOGLOBULIN G [Concomitant]
     Active Substance: HUMAN IMMUNOGLOBULIN G
     Indication: Immunomodulatory therapy
     Dosage: 2 G/KG
     Route: 042
  37. RITUXIMAB [Concomitant]
     Active Substance: RITUXIMAB
     Indication: Immunomodulatory therapy
     Dosage: 1000 MILLIGRAM PER DAY
  38. CYCLOPHOSPHAMIDE [Concomitant]
     Active Substance: CYCLOPHOSPHAMIDE
     Indication: Immunomodulatory therapy
     Dosage: 750 MILLIGRAM/M2
  39. CYCLOPHOSPHAMIDE [Concomitant]
     Active Substance: CYCLOPHOSPHAMIDE
     Dosage: 600 MILLIGRAM/M2
  40. VANCOMYCIN [Concomitant]
     Active Substance: VANCOMYCIN
     Indication: Product used for unknown indication
     Dosage: UNK
  41. CEFTRIAXONE [Concomitant]
     Active Substance: CEFTRIAXONE\CEFTRIAXONE SODIUM
     Indication: Product used for unknown indication
     Dosage: UNK
  42. ACYCLOVIR [Concomitant]
     Active Substance: ACYCLOVIR
     Indication: Product used for unknown indication
     Dosage: UNK

REACTIONS (4)
  - Status epilepticus [Recovered/Resolved]
  - Multiple-drug resistance [Unknown]
  - Overdose [Unknown]
  - Off label use [Unknown]
